FAERS Safety Report 4912855-2 (Version None)
Quarter: 2006Q1

REPORT INFORMATION
  Report Type: 
  Country: None (occurrence: None)
  Receive Date: 20060210
  Receipt Date: 20060126
  Transmission Date: 20060701
  Serious: Yes (Hospitalization)
  Sender: FDA-Public Use
  Company Number: B0407888A

PATIENT
  Age: 55 Year
  Sex: Female
  Weight: 47.8998 kg

DRUGS (5)
  1. EPZICOM                   (ABACAVIR S04 + LAMIVUDINE) [Suspect]
     Indication: HIV INFECTION
     Dosage: 1 TABLET/PER DAY/ORAL
     Route: 048
     Dates: end: 20051230
  2. KALETRA [Concomitant]
  3. THYROXINE SODIUM [Concomitant]
  4. POTASSIUM CHLORIDE [Concomitant]
  5. SODIUM SALT [Concomitant]

REACTIONS (20)
  - ANAEMIA [None]
  - BLOOD SODIUM DECREASED [None]
  - CYTOMEGALOVIRUS ANTIBODY POSITIVE [None]
  - DIARRHOEA [None]
  - EPSTEIN-BARR VIRUS ANTIBODY POSITIVE [None]
  - FUNGAL SKIN INFECTION [None]
  - GASTROINTESTINAL FUNGAL INFECTION [None]
  - HAEMATURIA [None]
  - HERPES SIMPLEX SEROLOGY POSITIVE [None]
  - HYPOKALAEMIA [None]
  - HYPOTHYROIDISM [None]
  - LIPOMA [None]
  - NEUTROPENIA [None]
  - PHLEBITIS [None]
  - PNEUMOCYSTIS JIROVECI PNEUMONIA [None]
  - PYREXIA [None]
  - RASH [None]
  - RENAL FAILURE ACUTE [None]
  - VARICELLA ZOSTER VIRUS SEROLOGY POSITIVE [None]
  - WHITE BLOOD CELL COUNT DECREASED [None]
